FAERS Safety Report 7347257-5 (Version None)
Quarter: 2011Q1

REPORT INFORMATION
  Report Type: 
  Country: None (occurrence: None)
  Receive Date: 20110311
  Receipt Date: 20110228
  Transmission Date: 20110831
  Serious: Yes (Other)
  Sender: FDA-Public Use
  Company Number: FR-WATSON-2011-02687

PATIENT
  Age: 61 Year
  Sex: Female

DRUGS (1)
  1. ANASTROZOLE (WATSON LABORATORIES) [Suspect]
     Indication: BREAST CANCER
     Dosage: UNK
     Dates: start: 20050601, end: 20091101

REACTIONS (1)
  - RHEUMATOID ARTHRITIS [None]
